FAERS Safety Report 9057318 (Version 2)
Quarter: 2013Q1

REPORT INFORMATION
  Report Type: Spontaneous
  Country: FR (occurrence: FR)
  Receive Date: 20130131
  Receipt Date: 20130210
  Transmission Date: 20140127
  Serious: Yes (Hospitalization, Other)
  Sender: FDA-Public Use
  Company Number: FR-TEVA-382690ISR

PATIENT
  Sex: Male

DRUGS (4)
  1. AZILECT [Suspect]
     Indication: PARKINSON^S DISEASE
     Dosage: 1 MILLIGRAM DAILY;
     Route: 048
     Dates: start: 20121128, end: 201212
  2. MODOPAR 125 [Concomitant]
     Dosage: 3 DOSAGE FORMS DAILY; LONG TERM TREATMENT
     Dates: start: 2000
  3. SIFROL 0.7 [Concomitant]
     Dosage: 2.1 MILLIGRAM DAILY; LONG TERM TREATMENT
     Dates: start: 2006
  4. MODOPAR LP [Concomitant]
     Dosage: 2 DOSAGE FORMS DAILY; LONG TERM TREATMENT - IN THE EVENING
     Dates: start: 2000

REACTIONS (5)
  - Pemphigoid [Recovering/Resolving]
  - Pruritus [Recovering/Resolving]
  - Psychiatric decompensation [Recovering/Resolving]
  - Hallucination [Recovering/Resolving]
  - Confusional state [Recovering/Resolving]
